FAERS Safety Report 5994889-2 (Version None)
Quarter: 2008Q4

REPORT INFORMATION
  Report Type: 
  Country: None (occurrence: None)
  Receive Date: 20081212
  Receipt Date: 20080916
  Transmission Date: 20090506
  Serious: No
  Sender: FDA-Public Use
  Company Number: US-ABBOTT-08P-163-0476797-00

PATIENT
  Sex: Male
  Weight: 102.15 kg

DRUGS (7)
  1. HUMIRA [Suspect]
     Indication: PSORIATIC ARTHROPATHY
     Route: 050
     Dates: start: 20080801, end: 20080901
  2. HUMIRA [Suspect]
     Dates: start: 20080901
  3. METHOTREXATE [Concomitant]
     Indication: PSORIATIC ARTHROPATHY
     Dosage: 8 TABLETS
     Route: 048
  4. FOLIC ACID [Concomitant]
     Indication: PSORIATIC ARTHROPATHY
     Route: 048
  5. VICODIN [Concomitant]
     Indication: PAIN
     Route: 048
     Dates: start: 20050101
  6. ACETAMINOPHEN W/ PROPOXYPHENE HCL [Concomitant]
     Indication: PAIN
     Route: 048
     Dates: start: 20060101
  7. IBUPROFEN [Concomitant]
     Indication: PAIN
     Route: 048

REACTIONS (2)
  - INJECTION SITE PAIN [None]
  - PYREXIA [None]
